FAERS Safety Report 4368542-5 (Version None)
Quarter: 2004Q2

REPORT INFORMATION
  Report Type: 
  Country: None (occurrence: None)
  Receive Date: 20040528
  Receipt Date: 20040518
  Transmission Date: 20050107
  Serious: Yes (Hospitalization)
  Sender: FDA-Public Use
  Company Number: 12574331

PATIENT
  Age: 72 Year
  Sex: Female

DRUGS (6)
  1. ECAZIDE         (CAPTOPRIL + HCTZ) [Suspect]
     Dosage: 1 DOSAGE FROM 1 DAY; ORAL
     Route: 048
  2. REVIA [Suspect]
     Dosage: 50 MILLIGRAM 1/1 DAY; ORAL
     Route: 048
  3. CLONAZEPAM [Suspect]
     Dosage: 4 DOSAGE FROM 1 DAY; ORAL
     Route: 048
     Dates: end: 20040102
  4. CELEBREX [Suspect]
     Dosage: 400 MILLIGRAM 1 DAY; ORAL
     Route: 048
     Dates: start: 20030715
  5. TOPALGIC (TAMADOL HCL) [Suspect]
     Dosage: 400 MILLIGRAM 1 DAY; ORAL
     Route: 048
     Dates: start: 20031218, end: 20040102
  6. ZOLOFT [Suspect]
     Dosage: 100 MILLIGRAM 1 DAY; ORAL
     Route: 048
     Dates: start: 20031226

REACTIONS (9)
  - ACTIVITIES OF DAILY LIVING IMPAIRED [None]
  - ANOREXIA [None]
  - APATHY [None]
  - BALANCE DISORDER [None]
  - CONFUSIONAL STATE [None]
  - DEPRESSION [None]
  - PAIN IN EXTREMITY [None]
  - SOMNOLENCE [None]
  - TREATMENT NONCOMPLIANCE [None]
